FAERS Safety Report 11755218 (Version 4)
Quarter: 2016Q1

REPORT INFORMATION
  Report Type: Spontaneous
  Country: US (occurrence: US)
  Receive Date: 20151119
  Receipt Date: 20160216
  Transmission Date: 20160525
  Serious: Yes (Hospitalization)
  Sender: FDA-Public Use
  Company Number: US-JNJFOC-20151115774

PATIENT
  Age: 2 Year
  Sex: Male
  Weight: 17.24 kg

DRUGS (1)
  1. XARELTO [Suspect]
     Active Substance: RIVAROXABAN
     Indication: PRODUCT USED FOR UNKNOWN INDICATION
     Route: 048
     Dates: start: 20151111, end: 20151111

REACTIONS (4)
  - Accidental exposure to product by child [Recovered/Resolved]
  - Blood count abnormal [Unknown]
  - Product container issue [Unknown]
  - Infusion site bruising [Not Recovered/Not Resolved]

NARRATIVE: CASE EVENT DATE: 20151111
